FAERS Safety Report 4883213-4 (Version None)
Quarter: 2006Q1

REPORT INFORMATION
  Report Type: 
  Country: None (occurrence: None)
  Receive Date: 20060118
  Receipt Date: 20060106
  Transmission Date: 20060701
  Serious: Yes (Other)
  Sender: FDA-Public Use
  Company Number: US-JNJFOC-20060101883

PATIENT
  Sex: Male

DRUGS (3)
  1. TOPAMAX [Suspect]
     Indication: DRUG THERAPY
  2. TOPAMAX [Suspect]
     Indication: EPILEPSY
  3. CLONOPIN [Concomitant]

REACTIONS (6)
  - DEVELOPMENTAL DELAY [None]
  - DYSPHAGIA [None]
  - MALAISE [None]
  - PYREXIA [None]
  - RESPIRATORY DISORDER NEONATAL [None]
  - WHITE BLOOD CELL COUNT INCREASED [None]
